FAERS Safety Report 8442813-5 (Version None)
Quarter: 2012Q2

REPORT INFORMATION
  Report Type: 
  Country: None (occurrence: None)
  Receive Date: 20120323
  Receipt Date: 20110811
  Transmission Date: 20120825
  Serious: Yes (Disabling, Other)
  Sender: FDA-Public Use
  Company Number: 163-21880-11061429

PATIENT
  Age: 77 Year
  Sex: Female

DRUGS (13)
  1. COREG [Concomitant]
  2. HYDRALAZINE HCL [Concomitant]
  3. ASPIRIN [Concomitant]
  4. CALCIUM CARBONATE [Concomitant]
  5. POTASSIUM CHLORIDE [Concomitant]
  6. CARVEDILOL [Concomitant]
  7. DIOVAN [Concomitant]
  8. ALLOPURINOL [Concomitant]
  9. KLOR-CON [Concomitant]
  10. REVLIMID [Suspect]
     Indication: MULTIPLE MYELOMA
     Dosage: 10 MG, D1-21, PO
     Route: 048
     Dates: start: 20110530
  11. FUROSEMIDE [Concomitant]
  12. DECADRON [Concomitant]
  13. VITAMIN D [Concomitant]

REACTIONS (2)
  - RED BLOOD CELL COUNT DECREASED [None]
  - FATIGUE [None]
